FAERS Safety Report 24047471 (Version 1)
Quarter: 2024Q3

REPORT INFORMATION
  Report Type: Spontaneous
  Country: US (occurrence: US)
  Receive Date: 20240703
  Receipt Date: 20240703
  Transmission Date: 20241016
  Serious: No
  Sender: Harrow Health
  Company Number: US-IMP-2023000334

PATIENT
  Sex: Male

DRUGS (1)
  1. ZERVIATE [Suspect]
     Active Substance: CETIRIZINE HYDROCHLORIDE
     Indication: Hypersensitivity
     Dosage: 2 DROPS TWICE PER DAY (BID), SINGLE USE VIAL
     Route: 047

REACTIONS (3)
  - Superficial injury of eye [Unknown]
  - Off label use [Unknown]
  - Product administration error [Unknown]
